FAERS Safety Report 9556405 (Version 1)
Quarter: 2013Q3

REPORT INFORMATION
  Report Type: Spontaneous
  Country: DE (occurrence: None)
  Receive Date: 20130819
  Receipt Date: 20130819
  Transmission Date: 20140515
  Serious: Yes (Other)
  Sender: FDA-Public Use
  Company Number: 13DE007279

PATIENT
  Age: 31 Year
  Sex: Female

DRUGS (4)
  1. PAROXETINE [Suspect]
     Indication: PANIC DISORDER
     Route: 048
     Dates: start: 20130222
  2. PAROXETINE [Suspect]
     Indication: DEPRESSION
     Route: 048
     Dates: start: 20130222
  3. CIPRALEX [Suspect]
     Indication: PANIC DISORDER
     Route: 048
     Dates: start: 20130121, end: 20130221
  4. CIPRALEX [Suspect]
     Indication: DEPRESSION
     Route: 048
     Dates: start: 20130121, end: 20130221

REACTIONS (3)
  - Nocturia [None]
  - Pollakiuria [None]
  - Inappropriate antidiuretic hormone secretion [None]
